FAERS Safety Report 8587334-4 (Version None)
Quarter: 2012Q3

REPORT INFORMATION
  Report Type: 
  Country: None (occurrence: None)
  Receive Date: 20120810
  Receipt Date: 20120326
  Transmission Date: 20120928
  Serious: No
  Sender: FDA-Public Use
  Company Number: US-ASTRAZENECA-2012SE20443

PATIENT
  Age: 760 Month
  Sex: Female
  Weight: 54.4 kg

DRUGS (2)
  1. ARIMIDEX [Suspect]
     Indication: BREAST CANCER
     Route: 048
     Dates: start: 20100101
  2. LISINOPRIL [Suspect]
     Indication: BLOOD PRESSURE MANAGEMENT
     Route: 048

REACTIONS (8)
  - DRY MOUTH [None]
  - NEUROPATHY PERIPHERAL [None]
  - PAIN IN EXTREMITY [None]
  - WEIGHT DECREASED [None]
  - HYPOAESTHESIA [None]
  - PARAESTHESIA [None]
  - PRURITUS [None]
  - ARTHRITIS [None]
